FAERS Safety Report 25671818 (Version 1)
Quarter: 2025Q3

REPORT INFORMATION
  Report Type: Spontaneous
  Country: US (occurrence: US)
  Receive Date: 20250812
  Receipt Date: 20250812
  Transmission Date: 20251021
  Serious: No
  Sender: MYLAN
  Company Number: US-MYLANLABS-2025M1066446

PATIENT
  Sex: Female

DRUGS (4)
  1. NEURONTIN [Suspect]
     Active Substance: GABAPENTIN
     Indication: Pain
     Dosage: 400 MILLIGRAM, TID (THREE TIMES DAILY)
     Dates: start: 20240801
  2. NEURONTIN [Suspect]
     Active Substance: GABAPENTIN
     Dosage: 400 MILLIGRAM, TID (THREE TIMES DAILY)
     Route: 048
     Dates: start: 20240801
  3. NEURONTIN [Suspect]
     Active Substance: GABAPENTIN
     Dosage: 400 MILLIGRAM, TID (THREE TIMES DAILY)
     Route: 048
     Dates: start: 20240801
  4. NEURONTIN [Suspect]
     Active Substance: GABAPENTIN
     Dosage: 400 MILLIGRAM, TID (THREE TIMES DAILY)
     Dates: start: 20240801

REACTIONS (1)
  - Off label use [Unknown]
